FAERS Safety Report 8271329-4 (Version None)
Quarter: 2012Q2

REPORT INFORMATION
  Report Type: 
  Country: None (occurrence: None)
  Receive Date: 20120410
  Receipt Date: 20111230
  Transmission Date: 20120825
  Serious: No
  Sender: FDA-Public Use
  Company Number: US-NOVEN-11US003857

PATIENT
  Sex: Female

DRUGS (1)
  1. FENTANYL CITRATE [Suspect]
     Indication: ARTHRALGIA
     Dosage: 100 UG/HR, PATCH EVERY 48 HRS
     Route: 062
     Dates: start: 20111201, end: 20111201

REACTIONS (3)
  - APPLICATION SITE PAIN [None]
  - APPLICATION SITE RASH [None]
  - APPLICATION SITE PRURITUS [None]
